FAERS Safety Report 7559775-5 (Version None)
Quarter: 2011Q2

REPORT INFORMATION
  Report Type: 
  Country: None (occurrence: None)
  Receive Date: 20110621
  Receipt Date: 20110613
  Transmission Date: 20111010
  Serious: Yes (Death)
  Sender: FDA-Public Use
  Company Number: KR-ROCHE-782426

PATIENT

DRUGS (4)
  1. AZATHIOPRINE [Suspect]
     Route: 065
  2. PREDNISOLONE [Suspect]
     Route: 065
  3. MYCOPHENOLATE MEFETIL [Suspect]
     Route: 065
  4. TACROLIMUS [Suspect]
     Route: 065

REACTIONS (1)
  - BACTERAEMIA [None]
